FAERS Safety Report 7938742-3 (Version None)
Quarter: 2011Q4

REPORT INFORMATION
  Report Type: 
  Country: None (occurrence: None)
  Receive Date: 20111124
  Receipt Date: 20111118
  Transmission Date: 20120403
  Serious: No
  Sender: FDA-Public Use
  Company Number: US-BIOGENIDEC-2011BI032102

PATIENT
  Age: 52 Year
  Sex: Female

DRUGS (9)
  1. LEVOXYL [Concomitant]
     Indication: THYROID FUNCTION TEST ABNORMAL
  2. ANTIBIOTIC [Concomitant]
     Indication: GINGIVAL INFECTION
  3. TYSABRI [Suspect]
     Indication: MULTIPLE SCLEROSIS
     Route: 042
     Dates: start: 20110817
  4. LEVOXYL [Concomitant]
     Indication: WEIGHT INCREASED
  5. WELLBUTRIN [Concomitant]
     Indication: EMOTIONAL DISORDER
  6. LEVOXYL [Concomitant]
     Indication: FATIGUE
  7. LEVOXYL [Concomitant]
     Indication: HYPOTHYROIDISM
  8. LEVOXYL [Concomitant]
     Indication: FLUID RETENTION
  9. WATER PILL (NOS) [Concomitant]
     Indication: FLUID RETENTION

REACTIONS (18)
  - THYROID FUNCTION TEST ABNORMAL [None]
  - FEELING HOT [None]
  - WEIGHT INCREASED [None]
  - CONTUSION [None]
  - LOOSE TOOTH [None]
  - GINGIVAL INFECTION [None]
  - FATIGUE [None]
  - FEAR [None]
  - FLUID RETENTION [None]
  - BLOOD PRESSURE INCREASED [None]
  - MYALGIA [None]
  - FALL [None]
  - DYSPHEMIA [None]
  - MUSCULAR WEAKNESS [None]
  - MICTURITION URGENCY [None]
  - MUSCULOSKELETAL STIFFNESS [None]
  - FEELING ABNORMAL [None]
  - ABNORMAL DREAMS [None]
